FAERS Safety Report 9985370 (Version 1)
Quarter: 2014Q1

REPORT INFORMATION
  Report Type: Report from Study
  Country: US (occurrence: US)
  Receive Date: 20140307
  Receipt Date: 20140307
  Transmission Date: 20141002
  Serious: No
  Sender: FDA-Public Use
  Company Number: US-ABBVIE-14P-163-1185887-00

PATIENT
  Sex: Male

DRUGS (9)
  1. HUMIRA [Suspect]
     Indication: PSORIASIS
     Dates: start: 201301
  2. BISOPROLOL [Concomitant]
     Indication: HYPERTENSION
  3. QUINAPRIL [Concomitant]
     Indication: HYPERTENSION
  4. HYDROCHLOROTHIAZIDE [Concomitant]
     Indication: HYPERTENSION
  5. GLIPIZIDE [Concomitant]
     Indication: DIABETES MELLITUS
     Dosage: 5-5 MG
  6. ANDROGEL [Concomitant]
     Indication: BLOOD TESTOSTERONE
     Dosage: 2 PUMPS
  7. LOVASTATIN [Concomitant]
     Indication: PRODUCT USED FOR UNKNOWN INDICATION
  8. LOVAZA [Concomitant]
     Indication: PRODUCT USED FOR UNKNOWN INDICATION
  9. VITAMIN D NOS [Concomitant]
     Indication: PRODUCT USED FOR UNKNOWN INDICATION

REACTIONS (4)
  - Sinus operation [Not Recovered/Not Resolved]
  - Cough [Not Recovered/Not Resolved]
  - Psoriasis [Unknown]
  - Drug ineffective [Unknown]
